FAERS Safety Report 7673567 (Version 3)
Quarter: 2025Q1

REPORT INFORMATION
  Report Type: Spontaneous
  Country: DE (occurrence: DE)
  Receive Date: 20101118
  Receipt Date: 20250226
  Transmission Date: 20250409
  Serious: Yes (Hospitalization, Other)
  Sender: JOHNSON AND JOHNSON
  Company Number: DE-JNJFOC-20101102434

PATIENT
  Age: 58 Year
  Sex: Male

DRUGS (28)
  1. RISPERDAL [Suspect]
     Active Substance: RISPERIDONE
     Indication: Ill-defined disorder
     Route: 048
     Dates: start: 20091028, end: 20091028
  2. RISPERDAL [Suspect]
     Active Substance: RISPERIDONE
     Indication: Product used for unknown indication
     Route: 048
     Dates: start: 20091029, end: 20091029
  3. RISPERDAL [Suspect]
     Active Substance: RISPERIDONE
     Route: 048
     Dates: start: 20091030, end: 20091101
  4. RISPERDAL [Suspect]
     Active Substance: RISPERIDONE
     Route: 048
     Dates: start: 20091102, end: 20091103
  5. RISPERDAL [Suspect]
     Active Substance: RISPERIDONE
     Route: 048
     Dates: start: 20091104, end: 20091104
  6. RISPERDAL [Suspect]
     Active Substance: RISPERIDONE
  7. CLOZAPINE [Suspect]
     Active Substance: CLOZAPINE
     Indication: Ill-defined disorder
     Route: 048
     Dates: start: 1995, end: 20090828
  8. CLOZAPINE [Suspect]
     Active Substance: CLOZAPINE
     Indication: Mania
     Route: 048
     Dates: start: 20090828, end: 20090830
  9. CLOZAPINE [Suspect]
     Active Substance: CLOZAPINE
     Indication: Hallucination
     Route: 048
     Dates: start: 20090901, end: 20091004
  10. CLOZAPINE [Suspect]
     Active Substance: CLOZAPINE
     Route: 048
     Dates: start: 20091005, end: 20091008
  11. CLOZAPINE [Suspect]
     Active Substance: CLOZAPINE
     Route: 048
     Dates: start: 20091009, end: 20091011
  12. CLOZAPINE [Suspect]
     Active Substance: CLOZAPINE
     Route: 048
     Dates: start: 20091012, end: 20091104
  13. CLOZAPINE [Suspect]
     Active Substance: CLOZAPINE
     Route: 048
     Dates: start: 20091105, end: 20091108
  14. CLOZAPINE [Suspect]
     Active Substance: CLOZAPINE
     Route: 048
     Dates: start: 20091109, end: 20091113
  15. CLOZAPINE [Suspect]
     Active Substance: CLOZAPINE
     Route: 048
     Dates: start: 20091114
  16. MELPERONE HYDROCHLORIDE [Interacting]
     Active Substance: MELPERONE HYDROCHLORIDE
     Indication: Ill-defined disorder
     Route: 048
     Dates: start: 20090829, end: 20090903
  17. MELPERONE HYDROCHLORIDE [Interacting]
     Active Substance: MELPERONE HYDROCHLORIDE
     Route: 048
     Dates: start: 20090909, end: 20091006
  18. MELPERONE HYDROCHLORIDE [Interacting]
     Active Substance: MELPERONE HYDROCHLORIDE
     Route: 048
     Dates: start: 20091007, end: 20091104
  19. MELPERONE HYDROCHLORIDE [Interacting]
     Active Substance: MELPERONE HYDROCHLORIDE
     Route: 048
     Dates: start: 20091110, end: 20091124
  20. MELPERONE HYDROCHLORIDE [Interacting]
     Active Substance: MELPERONE HYDROCHLORIDE
     Route: 048
     Dates: start: 20091125, end: 20091125
  21. MELPERONE HYDROCHLORIDE [Interacting]
     Active Substance: MELPERONE HYDROCHLORIDE
     Route: 048
     Dates: start: 20091126
  22. MELPERONE HYDROCHLORIDE [Interacting]
     Active Substance: MELPERONE HYDROCHLORIDE
     Route: 048
     Dates: start: 20090904, end: 20091006
  23. TAVOR [Concomitant]
     Route: 048
     Dates: start: 20090828, end: 20091101
  24. TAVOR [Concomitant]
     Route: 048
     Dates: start: 20091102, end: 20091103
  25. TAVOR [Concomitant]
     Route: 048
     Dates: start: 20091104, end: 20091104
  26. TAVOR [Concomitant]
     Route: 048
     Dates: start: 20091105, end: 20091107
  27. TAVOR [Concomitant]
     Route: 048
     Dates: start: 20091108, end: 20091108
  28. TAVOR [Concomitant]
     Route: 048
     Dates: start: 20091109, end: 20091127

REACTIONS (8)
  - Delirium [Recovered/Resolved]
  - Polydipsia [Recovered/Resolved]
  - Hyponatraemia [Recovered/Resolved]
  - Blood creatine phosphokinase increased [Unknown]
  - Delusion [Unknown]
  - Hallucination [Unknown]
  - Paranoia [Recovered/Resolved]
  - Drug interaction [Recovered/Resolved]

NARRATIVE: CASE EVENT DATE: 20091101
